FAERS Safety Report 24238968 (Version 1)
Quarter: 2024Q3

REPORT INFORMATION
  Report Type: Report from Study
  Country: ZA (occurrence: ZA)
  Receive Date: 20240822
  Receipt Date: 20240822
  Transmission Date: 20241017
  Serious: Yes (Other)
  Sender: REGENERON
  Company Number: ZA-BAYER-2024A117350

PATIENT
  Sex: Male

DRUGS (1)
  1. EYLEA [Suspect]
     Active Substance: AFLIBERCEPT
     Indication: Neovascular age-related macular degeneration
     Dosage: 1 X VIAL FOR EACH EYE (BOTH EYES), 40 MG/ML, SOLUTION FOR INJECTION
     Dates: start: 20230216

REACTIONS (1)
  - Eye haemorrhage [Unknown]
